FAERS Safety Report 20502130 (Version 1)
Quarter: 2022Q1

REPORT INFORMATION
  Report Type: Spontaneous
  Country: US (occurrence: US)
  Receive Date: 20220222
  Receipt Date: 20220222
  Transmission Date: 20220423
  Serious: No
  Sender: FDA-Public Use
  Company Number: US-NOVOPROD-784365

PATIENT
  Sex: Female

DRUGS (5)
  1. SAXENDA [Suspect]
     Active Substance: LIRAGLUTIDE
     Indication: Product used for unknown indication
     Dosage: 3 MG, QD
     Route: 058
     Dates: start: 202007
  2. SAXENDA [Suspect]
     Active Substance: LIRAGLUTIDE
     Dosage: UNK (RE-STARTED AFTER BEING OFF THE MEDICATION FOR SOME TIME)
     Route: 058
     Dates: end: 20210125
  3. SAXENDA [Suspect]
     Active Substance: LIRAGLUTIDE
     Dosage: UNK (RE-STARTED AFTER STOPPING FOR 2 NIGHTS)
     Route: 058
  4. CANNABIDIOL [Suspect]
     Active Substance: CANNABIDIOL
     Indication: Crohn^s disease
     Dosage: UNK
     Route: 065
     Dates: end: 20210125
  5. CANNABIDIOL [Suspect]
     Active Substance: CANNABIDIOL
     Indication: Insomnia
     Dosage: STOPPED FOR TWO NIGHTS AND RE-STARTED
     Route: 065

REACTIONS (10)
  - Gastrointestinal motility disorder [Not Recovered/Not Resolved]
  - Condition aggravated [Not Recovered/Not Resolved]
  - Pain [Recovering/Resolving]
  - Poor quality sleep [Unknown]
  - Anxiety [Unknown]
  - Abdominal discomfort [Not Recovered/Not Resolved]
  - Constipation [Not Recovered/Not Resolved]
  - Nausea [Recovered/Resolved]
  - Fatigue [Recovered/Resolved]
  - Flatulence [Recovered/Resolved]

NARRATIVE: CASE EVENT DATE: 20210125
